FAERS Safety Report 5407472-4 (Version None)
Quarter: 2007Q3

REPORT INFORMATION
  Report Type: 
  Country: None (occurrence: None)
  Receive Date: 20070807
  Receipt Date: 20070725
  Transmission Date: 20080115
  Serious: Yes (Death, Hospitalization, Other)
  Sender: FDA-Public Use
  Company Number: US-ELI_LILLY_AND_COMPANY-US200707005540

PATIENT
  Age: 67 Year
  Sex: Male

DRUGS (4)
  1. CYMBALTA [Suspect]
     Indication: NEUROPATHY
     Dosage: 60 MG, UNK
     Route: 048
  2. SOMA [Concomitant]
  3. MORPHINE [Concomitant]
  4. PROZAC [Suspect]

REACTIONS (3)
  - COLON CANCER METASTATIC [None]
  - DYSKINESIA [None]
  - SUICIDE ATTEMPT [None]
